FAERS Safety Report 9002385 (Version 2)
Quarter: 2013Q3

REPORT INFORMATION
  Report Type: Report from Study
  Country: CA (occurrence: CA)
  Receive Date: 20130107
  Receipt Date: 20130716
  Transmission Date: 20140515
  Serious: Yes (Other)
  Sender: FDA-Public Use
  Company Number: PHHY2012CA122563

PATIENT
  Sex: Female

DRUGS (2)
  1. ACLASTA [Suspect]
     Indication: OSTEOPOROSIS
     Dosage: UNK
     Route: 042
     Dates: start: 20120221
  2. ACLASTA [Suspect]
     Dosage: UNK
     Route: 042
     Dates: start: 20130129

REACTIONS (2)
  - Tibia fracture [Unknown]
  - Rib fracture [Unknown]
